FAERS Safety Report 25219558 (Version 1)
Quarter: 2025Q2

REPORT INFORMATION
  Report Type: Spontaneous
  Country: US (occurrence: None)
  Receive Date: 20250418
  Receipt Date: 20250418
  Transmission Date: 20250716
  Serious: Yes (Other)
  Sender: FDA-CTU
  Company Number: None

PATIENT
  Age: 73 Year
  Sex: Male
  Weight: 67.5 kg

DRUGS (1)
  1. AMOXICILLIN\CLAVULANIC ACID [Suspect]
     Active Substance: AMOXICILLIN\CLAVULANIC ACID
     Indication: Urinary tract infection
     Dosage: ?14  14 EVERY 12 HOURS ORAL
     Route: 048
     Dates: start: 20250416

REACTIONS (3)
  - Muscular weakness [None]
  - Muscular weakness [None]
  - Hypoaesthesia [None]

NARRATIVE: CASE EVENT DATE: 20250416
